FAERS Safety Report 21903691 (Version 4)
Quarter: 2023Q1

REPORT INFORMATION
  Report Type: Spontaneous
  Country: BR (occurrence: BR)
  Receive Date: 20230124
  Receipt Date: 20230328
  Transmission Date: 20230418
  Serious: Yes (Hospitalization)
  Sender: FDA-Public Use
  Company Number: BR-VERTEX PHARMACEUTICALS-2023-000824

PATIENT
  Age: 34 Year
  Sex: Male

DRUGS (5)
  1. TRIKAFTA [Suspect]
     Active Substance: ELEXACAFTOR\IVACAFTOR\TEZACAFTOR
     Indication: Cystic fibrosis
     Dosage: UNKNOWN DOSAGE REGIMEN
     Route: 048
     Dates: start: 20220429
  2. PULMOZYME [Concomitant]
     Active Substance: DORNASE ALFA
  3. TOBRAMYCIN [Concomitant]
     Active Substance: TOBRAMYCIN
     Dosage: INHALED
  4. CREON [Concomitant]
     Active Substance: PANCRELIPASE AMYLASE\PANCRELIPASE LIPASE\PANCRELIPASE PROTEASE
  5. URSODIOL [Concomitant]
     Active Substance: URSODIOL

REACTIONS (2)
  - Infective pulmonary exacerbation of cystic fibrosis [Recovering/Resolving]
  - Drug ineffective [Unknown]

NARRATIVE: CASE EVENT DATE: 20230112
